FAERS Safety Report 24415144 (Version 5)
Quarter: 2025Q2

REPORT INFORMATION
  Report Type: Spontaneous
  Country: AT (occurrence: AT)
  Receive Date: 20241009
  Receipt Date: 20250411
  Transmission Date: 20250717
  Serious: Yes (Hospitalization, Other)
  Sender: ACCORD
  Company Number: AT-Accord-448791

PATIENT
  Age: 83 Year
  Sex: Female
  Weight: 59 kg

DRUGS (19)
  1. LETROZOLE [Suspect]
     Active Substance: LETROZOLE
     Indication: Breast cancer
     Route: 048
     Dates: start: 20220302, end: 20220824
  2. EXEMESTANE [Suspect]
     Active Substance: EXEMESTANE
     Indication: Breast cancer
     Route: 048
     Dates: start: 20220826
  3. PALBOCICLIB [Suspect]
     Active Substance: PALBOCICLIB
     Indication: Breast cancer
     Dates: start: 20220302, end: 20220523
  4. EUTHYROX [Concomitant]
     Active Substance: LEVOTHYROXINE SODIUM
     Indication: Hypothyroidism
     Route: 048
     Dates: start: 20100101
  5. ASPIRIN [Concomitant]
     Active Substance: ASPIRIN
     Indication: Prophylaxis
     Route: 048
     Dates: start: 20160128
  6. SPIRONOLACTONE [Concomitant]
     Active Substance: SPIRONOLACTONE
     Indication: Hypertension
     Route: 048
     Dates: start: 20180328, end: 20220530
  7. RAMIPRIL,TELMISARTAN [Concomitant]
     Indication: Hypertension
     Route: 048
     Dates: start: 20180328, end: 20220530
  8. BISOPROLOL [Concomitant]
     Active Substance: BISOPROLOL
     Indication: Hypertension
     Route: 048
     Dates: start: 20160128, end: 20220530
  9. MAXI-KALZ [Concomitant]
     Indication: Prophylaxis
     Route: 048
     Dates: start: 20180328
  10. PANTOPRAZOLE SODIUM [Concomitant]
     Active Substance: PANTOPRAZOLE SODIUM
     Indication: Prophylaxis
     Route: 048
     Dates: start: 20180328
  11. FUROSEMIDE [Concomitant]
     Active Substance: FUROSEMIDE
     Indication: Hypertension
     Route: 048
     Dates: start: 20180328, end: 20220530
  12. ROSUVASTATIN [Concomitant]
     Active Substance: ROSUVASTATIN
     Indication: Prophylaxis
     Route: 048
     Dates: start: 20220329
  13. ATORVASTATIN [Concomitant]
     Active Substance: ATORVASTATIN
     Indication: Prophylaxis
     Route: 048
     Dates: start: 20230316
  14. LASIX [Concomitant]
     Active Substance: FUROSEMIDE
     Route: 042
  15. LASIX [Concomitant]
     Active Substance: FUROSEMIDE
     Route: 048
  16. LETROZOLE [Suspect]
     Active Substance: LETROZOLE
     Indication: Breast cancer
     Dates: start: 20220825, end: 20220825
  17. PALBOCICLIB [Suspect]
     Active Substance: PALBOCICLIB
     Indication: Breast cancer
     Dates: start: 20220608, end: 20220628
  18. BISOPROLOL [Concomitant]
     Active Substance: BISOPROLOL
     Indication: Hypertension
     Route: 048
     Dates: start: 20220531, end: 20220704
  19. PALBOCICLIB [Suspect]
     Active Substance: PALBOCICLIB
     Indication: Breast cancer
     Dates: start: 20220728

REACTIONS (10)
  - Atrial fibrillation [Not Recovered/Not Resolved]
  - Cardiac failure [Recovered/Resolved]
  - Renal impairment [Unknown]
  - Oedema peripheral [Unknown]
  - Urinary tract infection [Unknown]
  - Dizziness [Unknown]
  - Asthenia [Unknown]
  - Laboratory test abnormal [Unknown]
  - Hyperuricaemia [Unknown]
  - Headache [Recovering/Resolving]

NARRATIVE: CASE EVENT DATE: 20240426
